FAERS Safety Report 12456675 (Version 1)
Quarter: 2016Q2

REPORT INFORMATION
  Report Type: Spontaneous
  Country: US (occurrence: US)
  Receive Date: 20160610
  Receipt Date: 20160610
  Transmission Date: 20160815
  Serious: No
  Sender: FDA-Public Use
  Company Number: GXBR2016US000844

PATIENT
  Sex: Female
  Weight: 83.9 kg

DRUGS (1)
  1. TIZANIDINE SANDOZ [Suspect]
     Active Substance: TIZANIDINE
     Indication: PRODUCT USED FOR UNKNOWN INDICATION
     Dosage: UNK DF, UNK
     Route: 065

REACTIONS (2)
  - Dizziness [Unknown]
  - Palpitations [Unknown]
